FAERS Safety Report 24736890 (Version 1)
Quarter: 2024Q4

REPORT INFORMATION
  Report Type: Spontaneous
  Country: US (occurrence: None)
  Receive Date: 20241213
  Receipt Date: 20241213
  Transmission Date: 20250114
  Serious: Yes (Other)
  Sender: Public
  Company Number: None

PATIENT
  Sex: Female

DRUGS (11)
  1. ACTEMRA [Suspect]
     Active Substance: TOCILIZUMAB
     Indication: Rheumatoid arthritis
     Dosage: OTHER FREQUENCY : ONCEAWKFOR84DAYS ;?
     Route: 058
     Dates: start: 20230728
  2. ACTEMRA INJ ACTPEN [Concomitant]
  3. ARIPIPRAZOLE TAB 2MG [Concomitant]
  4. BUSPIRONE [Concomitant]
     Active Substance: BUSPIRONE HYDROCHLORIDE
  5. BUSPIRONE TAB 15MG [Concomitant]
  6. BUSPIRONE TAB5MG [Concomitant]
  7. CYCLOBENZAPRTAB10MG [Concomitant]
  8. DIAZEPAM TAB 5MG [Concomitant]
  9. DOXEPIN HCL CAP 10MG [Concomitant]
  10. DULOXETINE CAP 30MG [Concomitant]
  11. DULOXETINE CAP 60MG [Concomitant]

REACTIONS (4)
  - Pain [None]
  - Condition aggravated [None]
  - Intentional dose omission [None]
  - Surgery [None]
